FAERS Safety Report 8341651-1 (Version None)
Quarter: 2012Q2

REPORT INFORMATION
  Report Type: 
  Country: None (occurrence: None)
  Receive Date: 20120507
  Receipt Date: 20120503
  Transmission Date: 20120825
  Serious: Yes (Death, Hospitalization)
  Sender: FDA-Public Use
  Company Number: LU-PFIZER INC-2012076588

PATIENT
  Age: 63 Year
  Sex: Female
  Weight: 63.6 kg

DRUGS (3)
  1. CRIZOTINIB [Suspect]
     Indication: NON-SMALL CELL LUNG CANCER
     Dosage: 250 MG, 2X/DAY
     Route: 048
     Dates: start: 20120208, end: 20120322
  2. OMEPRAZOLE [Concomitant]
     Indication: GASTRITIS
     Dosage: 40 MG, 1X/DAY
     Route: 048
  3. BISOPROLOL FUMARATE [Concomitant]
     Indication: HYPERTENSION
     Dosage: 5 MG, 2X/DAY
     Route: 048

REACTIONS (3)
  - ASTHENIA [None]
  - FAECALOMA [None]
  - INTERSTITIAL LUNG DISEASE [None]
